FAERS Safety Report 24204914 (Version 1)
Quarter: 2024Q3

REPORT INFORMATION
  Report Type: Spontaneous
  Country: DE (occurrence: DE)
  Receive Date: 20240813
  Receipt Date: 20240813
  Transmission Date: 20241016
  Serious: Yes (Death, Other)
  Sender: AMGEN
  Company Number: DE-AMGEN-DEUSP2024160032

PATIENT

DRUGS (1)
  1. PREDNISONE [Suspect]
     Active Substance: PREDNISONE
     Indication: Crohn^s disease
     Dosage: UNK
     Route: 065

REACTIONS (8)
  - Death [Fatal]
  - Tuberculosis [Unknown]
  - Opportunistic infection [Unknown]
  - Adverse event [Unknown]
  - Infusion site reaction [Unknown]
  - Liver disorder [Unknown]
  - Cardiovascular disorder [Unknown]
  - Infection [Unknown]
